FAERS Safety Report 7500083-6 (Version None)
Quarter: 2011Q2

REPORT INFORMATION
  Report Type: 
  Country: None (occurrence: None)
  Receive Date: 20110524
  Receipt Date: 20110328
  Transmission Date: 20111010
  Serious: No
  Sender: FDA-Public Use
  Company Number: US-NOVEN-11US002123

PATIENT
  Sex: Male
  Weight: 108.84 kg

DRUGS (3)
  1. DAYTRANA [Suspect]
     Dosage: UNK
  2. RESTORIL [Concomitant]
     Indication: INSOMNIA
     Route: 048
  3. DAYTRANA [Suspect]
     Indication: ATTENTION DEFICIT/HYPERACTIVITY DISORDER
     Dosage: 20 MG, UNKNOWN
     Route: 062
     Dates: start: 20110301

REACTIONS (10)
  - INTENTIONAL DRUG MISUSE [None]
  - WRONG TECHNIQUE IN DRUG USAGE PROCESS [None]
  - APPLICATION SITE ERYTHEMA [None]
  - APPLICATION SITE BURN [None]
  - DRUG INEFFECTIVE [None]
  - OFF LABEL USE [None]
  - APPLICATION SITE PAIN [None]
  - DRUG PRESCRIBING ERROR [None]
  - PRODUCT QUALITY ISSUE [None]
  - DRUG ADMINISTERED AT INAPPROPRIATE SITE [None]
